FAERS Safety Report 7737473-2 (Version None)
Quarter: 2011Q3

REPORT INFORMATION
  Report Type: 
  Country: None (occurrence: None)
  Receive Date: 20110908
  Receipt Date: 20110830
  Transmission Date: 20111222
  Serious: Yes (Other)
  Sender: FDA-Public Use
  Company Number: US-GLAXOSMITHKLINE-A0942867A

PATIENT
  Age: 40 Year
  Sex: Female

DRUGS (2)
  1. NO CONCURRENT MEDICATION [Concomitant]
  2. VALTREX [Suspect]
     Indication: GENITAL HERPES
     Dosage: 1000MG PER DAY
     Route: 048
     Dates: start: 20110701, end: 20110701

REACTIONS (2)
  - ANXIETY [None]
  - SUICIDAL IDEATION [None]
